FAERS Safety Report 11631692 (Version 1)
Quarter: 2015Q4

REPORT INFORMATION
  Report Type: Spontaneous
  Country: US (occurrence: US)
  Receive Date: 20151015
  Receipt Date: 20151015
  Transmission Date: 20160304
  Serious: Yes (Other)
  Sender: FDA-Public Use
  Company Number: US-BEH-2015054566

PATIENT
  Sex: Female

DRUGS (3)
  1. HIZENTRA [Suspect]
     Active Substance: HUMAN IMMUNOGLOBULIN G
     Indication: MYASTHENIA GRAVIS
     Dosage: JUN-2015
  2. NEXIUM [Concomitant]
     Active Substance: ESOMEPRAZOLE MAGNESIUM
  3. NITROSTAT [Concomitant]
     Active Substance: NITROGLYCERIN

REACTIONS (6)
  - Abdominal discomfort [Unknown]
  - Pain in extremity [Unknown]
  - Hyperhidrosis [Unknown]
  - Breast cancer [Unknown]
  - Diarrhoea [Unknown]
  - Dyspepsia [Unknown]
